FAERS Safety Report 19261979 (Version 2)
Quarter: 2021Q2

REPORT INFORMATION
  Report Type: Spontaneous
  Country: IL (occurrence: IL)
  Receive Date: 20210516
  Receipt Date: 20210518
  Transmission Date: 20210717
  Serious: Yes (Other)
  Sender: FDA-Public Use
  Company Number: IL-DEXPHARM-20210598

PATIENT
  Age: 39 Year
  Sex: Female

DRUGS (5)
  1. COUMADIN [Interacting]
     Active Substance: WARFARIN SODIUM
  2. CLONEX (CLONAZEPAM) [Suspect]
     Active Substance: CLONAZEPAM
  3. BONDORMIN [Suspect]
     Active Substance: BROTIZOLAM
  4. VIEPAX XR 150MG 30 TABVIEPAX XR 150VIEPAX XR 150MG 30 TAB [Suspect]
     Active Substance: VENLAFAXINE HYDROCHLORIDE
  5. CLEXANE [Interacting]
     Active Substance: ENOXAPARIN SODIUM

REACTIONS (3)
  - Haemoglobin decreased [Unknown]
  - Pancytopenia [Unknown]
  - Drug interaction [Unknown]
